FAERS Safety Report 4712331-6 (Version None)
Quarter: 2005Q3

REPORT INFORMATION
  Report Type: 
  Country: None (occurrence: None)
  Receive Date: 20050711
  Receipt Date: 20050627
  Transmission Date: 20060218
  Serious: Yes (Hospitalization, Other)
  Sender: FDA-Public Use
  Company Number: 2005016397

PATIENT
  Age: 71 Year
  Sex: Female
  Weight: 86.637 kg

DRUGS (6)
  1. LIPITOR [Suspect]
     Indication: ILL-DEFINED DISORDER
     Dosage: 10 MG (1 IN 1 D)
     Dates: end: 20040808
  2. ZETIA [Suspect]
     Indication: ILL-DEFINED DISORDER
     Dosage: 10 MG (1 IN 1 D)
     Dates: end: 20040808
  3. PROPRANOLOL [Concomitant]
  4. HYDROCHLOROTHIAZIDE [Concomitant]
  5. AVAPRO [Concomitant]
  6. ACETYLSALICYLIC ACID SRT [Concomitant]

REACTIONS (66)
  - ABDOMINAL PAIN [None]
  - ABDOMINAL PAIN UPPER [None]
  - ANAEMIA [None]
  - ANOREXIA [None]
  - ARTHRITIS [None]
  - ASPARTATE AMINOTRANSFERASE INCREASED [None]
  - ATELECTASIS [None]
  - BACK PAIN [None]
  - BLOOD ALBUMIN DECREASED [None]
  - BLOOD CALCIUM DECREASED [None]
  - BLOOD CHLORIDE DECREASED [None]
  - BLOOD THYROID STIMULATING HORMONE INCREASED [None]
  - BLOOD TRIGLYCERIDES INCREASED [None]
  - BURSITIS [None]
  - CARPAL TUNNEL SYNDROME [None]
  - CERVICAL SPINAL STENOSIS [None]
  - CHEST PAIN [None]
  - CONSTIPATION [None]
  - CONTUSION [None]
  - COUGH [None]
  - DECREASED APPETITE [None]
  - DEHYDRATION [None]
  - DIFFICULTY IN WALKING [None]
  - DIZZINESS [None]
  - DYSPEPSIA [None]
  - DYSPNOEA [None]
  - DYSTONIA [None]
  - ELECTROCARDIOGRAM ABNORMAL [None]
  - ELECTROCARDIOGRAM ST SEGMENT ELEVATION [None]
  - FALL [None]
  - FATIGUE [None]
  - GENERALISED OEDEMA [None]
  - HEADACHE [None]
  - HEART RATE INCREASED [None]
  - HYPERGLYCAEMIA [None]
  - HYPOAESTHESIA [None]
  - HYPOKALAEMIA [None]
  - HYPONATRAEMIA [None]
  - INSOMNIA [None]
  - LUMBAR SPINAL STENOSIS [None]
  - MALAISE [None]
  - MALNUTRITION [None]
  - MITRAL VALVE INCOMPETENCE [None]
  - MUSCLE SPASMS [None]
  - MUSCLE TWITCHING [None]
  - NECK PAIN [None]
  - OEDEMA [None]
  - OLIGURIA [None]
  - PALPITATIONS [None]
  - PARAESTHESIA [None]
  - PCO2 DECREASED [None]
  - PLEURAL EFFUSION [None]
  - PNEUMONIA [None]
  - POLYNEUROPATHY [None]
  - PROTEIN TOTAL DECREASED [None]
  - PRURITUS [None]
  - PULMONARY CONGESTION [None]
  - QRS AXIS ABNORMAL [None]
  - RENAL FAILURE ACUTE [None]
  - RHABDOMYOLYSIS [None]
  - SENSATION OF HEAVINESS [None]
  - SPONDYLITIS [None]
  - TENDERNESS [None]
  - TRI-IODOTHYRONINE FREE DECREASED [None]
  - TRICUSPID VALVE INCOMPETENCE [None]
  - VERTIGO [None]
